FAERS Safety Report 8995946 (Version 1)
Quarter: 2013Q1

REPORT INFORMATION
  Report Type: Spontaneous
  Country: US (occurrence: US)
  Receive Date: 20130103
  Receipt Date: 20130103
  Transmission Date: 20140127
  Serious: Yes (Other)
  Sender: FDA-Public Use
  Company Number: CHPA2012US025851

PATIENT
  Age: 85 Year
  Sex: Male

DRUGS (1)
  1. MAALOX ADV MAXIMUM STRENGTH ANTACID/ANTIGAS [Suspect]
     Indication: ULCER
     Dosage: 1/2 TO 1 TSP, EVERY NIGHT
     Route: 048
     Dates: start: 1950

REACTIONS (6)
  - Loss of consciousness [Unknown]
  - Hypertension [Not Recovered/Not Resolved]
  - Blood pressure increased [Not Recovered/Not Resolved]
  - Therapeutic response unexpected [Unknown]
  - Off label use [Unknown]
  - Underdose [Unknown]
